FAERS Safety Report 12271254 (Version 2)
Quarter: 2016Q2

REPORT INFORMATION
  Report Type: Spontaneous
  Country: US (occurrence: US)
  Receive Date: 20160415
  Receipt Date: 20160606
  Transmission Date: 20160815
  Serious: No
  Sender: FDA-Public Use
  Company Number: US-GLAXOSMITHKLINE-US2016045646

PATIENT
  Age: 22 Year
  Sex: Female
  Weight: 68.27 kg

DRUGS (1)
  1. NUCALA [Suspect]
     Active Substance: MEPOLIZUMAB
     Indication: PRODUCT USED FOR UNKNOWN INDICATION
     Dosage: 100 MG, UNK
     Route: 058
     Dates: start: 20160330, end: 20160330

REACTIONS (5)
  - Fatigue [Recovered/Resolved]
  - Chest pain [Unknown]
  - Pain [Recovered/Resolved]
  - Chest discomfort [Recovered/Resolved]
  - Dyspnoea [Unknown]

NARRATIVE: CASE EVENT DATE: 20160330
